FAERS Safety Report 21437781 (Version 3)
Quarter: 2022Q4

REPORT INFORMATION
  Report Type: Spontaneous
  Country: US (occurrence: US)
  Receive Date: 20221011
  Receipt Date: 20221229
  Transmission Date: 20230112
  Serious: No
  Sender: FDA-Public Use
  Company Number: US-NOVARTISTESTPH-NVSC2022US228535

PATIENT
  Sex: Female

DRUGS (1)
  1. COMBIPATCH [Suspect]
     Active Substance: ESTRADIOL\NORETHINDRONE ACETATE
     Indication: Product used for unknown indication
     Dosage: 1 DOSAGE FORM  (DOSE: 0.05/ 0.14 MG, EVERY 3 TO 4 DAYS) (FOR ABOUT TWO MONTHS PRIOR TO THIS REPORT)
     Route: 062
     Dates: start: 2022

REACTIONS (5)
  - Product adhesion issue [Recovered/Resolved]
  - Device colour issue [Recovered/Resolved]
  - Device adhesion issue [Recovered/Resolved]
  - Device issue [Recovered/Resolved]
  - Product storage error [Not Recovered/Not Resolved]

NARRATIVE: CASE EVENT DATE: 20220101
